FAERS Safety Report 9331186 (Version 1)
Quarter: 2013Q2

REPORT INFORMATION
  Report Type: Spontaneous
  Country: FR (occurrence: FR)
  Receive Date: 20130605
  Receipt Date: 20130605
  Transmission Date: 20140414
  Serious: Yes (Hospitalization)
  Sender: FDA-Public Use
  Company Number: FR-ASTRAZENECA-2013SE38415

PATIENT
  Age: 28156 Day
  Sex: Male

DRUGS (3)
  1. BRILIQUE [Suspect]
     Dosage: 1 PILL IN THE MORNING, ONE IN THE EVENING, LONG LASTING TREATMENT
     Route: 048
     Dates: end: 20130125
  2. LOVENOX [Suspect]
     Route: 058
     Dates: start: 20130108, end: 20130125
  3. LOVENOX [Suspect]
     Route: 058
     Dates: start: 20130130

REACTIONS (2)
  - Anaemia [Recovering/Resolving]
  - Muscle haemorrhage [Recovering/Resolving]
